FAERS Safety Report 5154997-5 (Version None)
Quarter: 2006Q4

REPORT INFORMATION
  Report Type: 
  Country: None (occurrence: None)
  Receive Date: 20061121
  Receipt Date: 20061011
  Transmission Date: 20070319
  Serious: Yes (Other)
  Sender: FDA-Public Use
  Company Number: JP-ROCHE-467238

PATIENT
  Age: 6 Year
  Sex: Female
  Weight: 17 kg

DRUGS (8)
  1. ROCEPHIN [Suspect]
     Indication: SEPSIS
     Dosage: ROUTE REPORTED AS INTRAVENOUS (NOT OTHERWISE SPECIFIED)
     Route: 042
     Dates: start: 20060924, end: 20061004
  2. BACTRIM [Concomitant]
     Route: 048
     Dates: start: 20060428
  3. DIFLUCAN [Concomitant]
     Dosage: TAKEN ALSO ON 05 AUG 2006 UNTIL AUG 2006. THEN TAKEN ON 29 SEP 2006 AT A DOSE OF 100 MG 1/1 DAY ACT+
     Route: 048
     Dates: start: 20060428, end: 20060916
  4. IMMUNE GLOBULIN INTRAVENOUS (HUMAN) [Concomitant]
     Dosage: ALSO TAKEN ON 23 MAY TO 25 MAY 2006. 28 JUNE 2006 TO 29 JUNE 2006 16 JULY 2006 TO 16 JULY 2006 02 A+
     Route: 042
     Dates: start: 20060429, end: 20060501
  5. CARBENIN [Concomitant]
     Dosage: ALSO TAKEN ON 22 MAY TO 24 MAY 2006 ON 28 JUN TO 01 JULY 2006 ON 02 AUG TO 14 AUG 2006 ON 17 SEP 20+
     Route: 041
     Dates: start: 20060515, end: 20060519
  6. NEUTROGIN [Concomitant]
     Dosage: ALSO TAKEN ON 28 JUN TO 30 JUN 2006. ON 02 AUG TO 15 AUG 2006 ON 16 SEP TO 30 SEP 2006 AT A DOSE OF+
     Route: 042
     Dates: start: 20060523, end: 20060603
  7. FUNGUARD [Concomitant]
     Dosage: STOP DATE REPORTED AS 13 AUG 2006.  ALSO TAKEN ON 22 SEP TO 28 SEP 2006 500 MG 1/1 DAY
     Route: 042
     Dates: start: 20060815, end: 20060815
  8. TARGOCID [Concomitant]
     Dosage: ALSO TAKEN ON 22 SEP 2006 TO 27 SEP 2006 AT A DOSE OF 200 MG 1/1 DAY
     Route: 042
     Dates: start: 20060805, end: 20060813

REACTIONS (1)
  - CHOLELITHIASIS [None]
